FAERS Safety Report 7364286-6 (Version None)
Quarter: 2011Q1

REPORT INFORMATION
  Report Type: 
  Country: None (occurrence: None)
  Receive Date: 20110321
  Receipt Date: 20110310
  Transmission Date: 20110831
  Serious: Yes (Other)
  Sender: FDA-Public Use
  Company Number: B0701210A

PATIENT
  Age: 80 Year
  Sex: Male

DRUGS (1)
  1. AMOXICILLIN AND CLAVULANATE POTASSIUM [Suspect]
     Indication: INFECTION
     Route: 065
     Dates: start: 20110202, end: 20110206

REACTIONS (3)
  - GLOSSITIS [None]
  - DRUG HYPERSENSITIVITY [None]
  - DIET REFUSAL [None]
